FAERS Safety Report 5255626-2 (Version None)
Quarter: 2007Q1

REPORT INFORMATION
  Report Type: 
  Country: None (occurrence: None)
  Receive Date: 20070305
  Receipt Date: 20070221
  Transmission Date: 20070707
  Serious: Yes (Other)
  Sender: FDA-Public Use
  Company Number: US-PFIZER INC-2007014590

PATIENT
  Sex: Female
  Weight: 63.5 kg

DRUGS (2)
  1. CELEBREX [Suspect]
     Indication: PAIN
     Dates: start: 20060101, end: 20060101
  2. DILAUDID [Suspect]
     Dates: start: 20070101, end: 20070101

REACTIONS (5)
  - FEELING ABNORMAL [None]
  - HYPERSENSITIVITY [None]
  - PRURITUS [None]
  - ROTATOR CUFF SYNDROME [None]
  - SWELLING FACE [None]
